FAERS Safety Report 7488408-1 (Version None)
Quarter: 2011Q2

REPORT INFORMATION
  Report Type: 
  Country: None (occurrence: None)
  Receive Date: 20110518
  Receipt Date: 20110512
  Transmission Date: 20111010
  Serious: Yes (Death)
  Sender: FDA-Public Use
  Company Number: GB-SANOFI-AVENTIS-2011SA029639

PATIENT
  Age: 76 Year
  Sex: Male
  Weight: 80 kg

DRUGS (12)
  1. FUROSEMIDE [Suspect]
     Route: 048
     Dates: start: 20110304, end: 20110307
  2. VITAMIN B COMPLEX CAP [Concomitant]
  3. BISOPROLOL FUMARATE [Concomitant]
  4. SIMVASTATIN [Suspect]
     Route: 048
     Dates: start: 20110302, end: 20110308
  5. ASPIRIN [Concomitant]
  6. FUROSEMIDE [Suspect]
     Indication: LEFT VENTRICULAR FAILURE
     Route: 048
     Dates: start: 20110304, end: 20110307
  7. THIAMINE [Concomitant]
  8. CLOPIDOGREL BISULFATE [Suspect]
     Route: 048
     Dates: start: 20110303, end: 20110308
  9. ALLOPURINOL [Concomitant]
  10. THYROXIN [Concomitant]
  11. DIAZEPAM [Concomitant]
  12. RAMIPRIL [Concomitant]

REACTIONS (3)
  - ABDOMINAL PAIN UPPER [None]
  - LETHARGY [None]
  - LIVER INJURY [None]
